FAERS Safety Report 25063284 (Version 1)
Quarter: 2025Q1

REPORT INFORMATION
  Report Type: Spontaneous
  Country: US (occurrence: None)
  Receive Date: 20250311
  Receipt Date: 20250311
  Transmission Date: 20250409
  Serious: Yes (Hospitalization)
  Sender: FDA-CTU
  Company Number: None

PATIENT
  Age: 72 Year
  Sex: Female
  Weight: 79.7 kg

DRUGS (3)
  1. FLUOROURACIL [Suspect]
     Active Substance: FLUOROURACIL
     Dates: end: 20231011
  2. LEUCOVORIN CALCIUM [Suspect]
     Active Substance: LEUCOVORIN CALCIUM
     Dates: end: 20231011
  3. ELOXATIN [Suspect]
     Active Substance: OXALIPLATIN
     Dates: end: 20231009

REACTIONS (3)
  - Chest discomfort [None]
  - Dyspnoea [None]
  - Pericardial effusion [None]

NARRATIVE: CASE EVENT DATE: 20231023
